FAERS Safety Report 25289610 (Version 1)
Quarter: 2025Q2

REPORT INFORMATION
  Report Type: Report from Study
  Country: US (occurrence: US)
  Receive Date: 20250509
  Receipt Date: 20250509
  Transmission Date: 20250716
  Serious: Yes (Other)
  Sender: GILEAD
  Company Number: US-GILEAD-2025-0712700

PATIENT
  Age: 68 Year
  Sex: Female

DRUGS (5)
  1. IDELALISIB [Suspect]
     Active Substance: IDELALISIB
     Indication: B-cell lymphoma
     Dosage: 100 MG, QD
     Route: 048
     Dates: start: 20210316
  2. BRUKINSA [Concomitant]
     Active Substance: ZANUBRUTINIB
  3. ACYCLOVIR [Concomitant]
     Active Substance: ACYCLOVIR
  4. ATROPINE\DIPHENOXYLATE [Concomitant]
     Active Substance: ATROPINE\DIPHENOXYLATE
  5. SULFAMETHOXAZOLE AND TRIMETHOPRIM [Concomitant]
     Active Substance: SULFAMETHOXAZOLE\TRIMETHOPRIM

REACTIONS (1)
  - Malignant neoplasm progression [Not Recovered/Not Resolved]
